FAERS Safety Report 18105161 (Version 1)
Quarter: 2020Q3

REPORT INFORMATION
  Report Type: Spontaneous
  Country: IT (occurrence: IT)
  Receive Date: 20200804
  Receipt Date: 20200804
  Transmission Date: 20201103
  Serious: Yes (Death)
  Sender: FDA-Public Use
  Company Number: IT-ALKEM LABORATORIES LIMITED-IT-ALKEM-2020-04096

PATIENT
  Age: 48 Year
  Sex: Female

DRUGS (6)
  1. PROPANOL HYDROCHLORIDE [Suspect]
     Active Substance: PROPRANOLOL HYDROCHLORIDE
     Indication: MENTAL DISORDER
     Dosage: 40 MILLIGRAM
     Route: 065
  2. CLONAZEPAM. [Suspect]
     Active Substance: CLONAZEPAM
     Indication: MENTAL DISORDER
     Dosage: 20 DROP, TID
     Route: 065
  3. CLOTIAPINE [Suspect]
     Active Substance: CLOTHIAPINE
     Indication: MENTAL DISORDER
     Dosage: 20 DROP
     Route: 065
  4. HALOPERIDOL. [Suspect]
     Active Substance: HALOPERIDOL
     Indication: MENTAL DISORDER
     Dosage: 10 DROP, BID
     Route: 065
  5. FLUVOXAMINE [Suspect]
     Active Substance: FLUVOXAMINE
     Indication: MENTAL DISORDER
     Dosage: 150 MILLIGRAM
     Route: 065
  6. GABAPENTIN. [Suspect]
     Active Substance: GABAPENTIN
     Indication: MENTAL DISORDER
     Dosage: 300 MILLIGRAM, BID
     Route: 065

REACTIONS (1)
  - Poisoning [Fatal]
